FAERS Safety Report 24034967 (Version 1)
Quarter: 2024Q2

REPORT INFORMATION
  Report Type: Spontaneous
  Country: US (occurrence: None)
  Receive Date: 20240628
  Receipt Date: 20240628
  Transmission Date: 20240716
  Serious: Yes (Hospitalization)
  Sender: FDA-Public Use
  Company Number: None

PATIENT
  Sex: Female

DRUGS (1)
  1. OXBRYTA [Suspect]
     Active Substance: VOXELOTOR
     Indication: Sickle cell anaemia with crisis
     Dosage: FREQUENCY : DAILY;?
     Route: 048
     Dates: start: 202006

REACTIONS (4)
  - Sickle cell anaemia with crisis [None]
  - Therapy interrupted [None]
  - Treatment noncompliance [None]
  - Product distribution issue [None]

NARRATIVE: CASE EVENT DATE: 20240506
